FAERS Safety Report 10449449 (Version 1)
Quarter: 2014Q3

REPORT INFORMATION
  Report Type: Spontaneous
  Country: RO (occurrence: None)
  Receive Date: 20140910
  Receipt Date: 20140910
  Transmission Date: 20150326
  Serious: Yes (Other)
  Sender: FDA-Public Use
  Company Number: IPC201408-000445

PATIENT
  Age: 48 Year
  Sex: Male

DRUGS (4)
  1. ETHAMBUTOL [Suspect]
     Active Substance: ETHAMBUTOL HYDROCHLORIDE
     Indication: TUBERCULOSIS
     Dosage: STOPPED
  2. OMEPRAZOLE (OMEPRAZOLE) (OMEPRAZOLE) [Concomitant]
     Active Substance: OMEPRAZOLE
  3. VITAMIN B6 (VITAMIN B6) (VITAMIN B6) [Concomitant]
  4. ALLOPURINOL (ALLOPURINOL) (ALLOPURINOL) [Suspect]
     Active Substance: ALLOPURINOL
     Indication: HYPERURICAEMIA
     Dosage: STOPPED

REACTIONS (2)
  - Angioedema [None]
  - Pruritus [None]
